FAERS Safety Report 23335358 (Version 1)
Quarter: 2023Q4

REPORT INFORMATION
  Report Type: Other
  Country: CZ (occurrence: CZ)
  Receive Date: 20231225
  Receipt Date: 20231225
  Transmission Date: 20240109
  Serious: Yes (Hospitalization)
  Sender: FDA-Public Use
  Company Number: CZ-ALVOGEN-2023092785

PATIENT
  Age: 83 Year
  Sex: Female

DRUGS (10)
  1. CLINDAMYCIN [Suspect]
     Active Substance: CLINDAMYCIN
     Indication: Soft tissue infection
     Dosage: THERAPY WITH A DOUBLE COMBINATION OF ANTIBIOTICS
     Dates: start: 2023, end: 2023
  2. CIPROFLOXACIN [Suspect]
     Active Substance: CIPROFLOXACIN
     Indication: Soft tissue infection
     Dosage: THERAPY WITH A DOUBLE COMBINATION OF ANTIBIOTICS
     Dates: start: 2023, end: 2023
  3. AMLODIPINE [Concomitant]
     Active Substance: AMLODIPINE BESYLATE
     Indication: Product used for unknown indication
     Dosage: THERAPY WITH A DOUBLE COMBINATION OF ANTIBIOTICS
     Dates: start: 2023, end: 2023
  4. RAMIPRIL [Concomitant]
     Active Substance: RAMIPRIL
     Indication: Product used for unknown indication
     Dosage: THERAPY WITH A DOUBLE COMBINATION OF ANTIBIOTICS
     Dates: start: 2023, end: 2023
  5. INDAPAMIDE [Concomitant]
     Active Substance: INDAPAMIDE
     Indication: Product used for unknown indication
     Dosage: THERAPY WITH A DOUBLE COMBINATION OF ANTIBIOTICS
     Dates: start: 2023, end: 2023
  6. FENOFIBRATE [Concomitant]
     Active Substance: FENOFIBRATE
     Indication: Product used for unknown indication
     Dosage: THERAPY WITH A DOUBLE COMBINATION OF ANTIBIOTICS
     Dates: start: 2023, end: 2023
  7. LEVOTHYROXINE [Concomitant]
     Active Substance: LEVOTHYROXINE
     Indication: Product used for unknown indication
     Dosage: THERAPY WITH A DOUBLE COMBINATION OF ANTIBIOTICS
     Dates: start: 2023, end: 2023
  8. CETIRIZINE [Concomitant]
     Active Substance: CETIRIZINE HYDROCHLORIDE
     Indication: Product used for unknown indication
     Dosage: THERAPY WITH A DOUBLE COMBINATION OF ANTIBIOTICS
     Dates: start: 2023, end: 2023
  9. ASPIRIN [Concomitant]
     Active Substance: ASPIRIN
     Indication: Product used for unknown indication
     Dosage: THERAPY WITH A DOUBLE COMBINATION OF ANTIBIOTICS
     Dates: start: 2023, end: 2023
  10. VINPOCETINE [Concomitant]
     Active Substance: VINPOCETINE
     Indication: Product used for unknown indication
     Dosage: THERAPY WITH A DOUBLE COMBINATION OF ANTIBIOTICS
     Dates: start: 2023, end: 2023

REACTIONS (9)
  - Myasthenic syndrome [Recovering/Resolving]
  - Condition aggravated [Recovering/Resolving]
  - Brain stem syndrome [Recovering/Resolving]
  - Transient ischaemic attack [Recovering/Resolving]
  - Muscular weakness [Recovering/Resolving]
  - Dysphagia [Not Recovered/Not Resolved]
  - Dysarthria [Recovering/Resolving]
  - Eyelid ptosis [Recovering/Resolving]
  - Neuromuscular blockade [Recovering/Resolving]

NARRATIVE: CASE EVENT DATE: 20230101
